FAERS Safety Report 5421184-2 (Version None)
Quarter: 2007Q3

REPORT INFORMATION
  Report Type: 
  Country: None (occurrence: None)
  Receive Date: 20070821
  Receipt Date: 20070813
  Transmission Date: 20080115
  Serious: Yes (Hospitalization)
  Sender: FDA-Public Use
  Company Number: SE-ASTRAZENECA-2007SE04407

PATIENT
  Age: 33738 Day
  Sex: Female

DRUGS (10)
  1. ATACAND [Suspect]
     Indication: CARDIAC FAILURE
     Route: 048
     Dates: end: 20060605
  2. ATACAND [Suspect]
     Indication: OEDEMA DUE TO CARDIAC DISEASE
     Route: 048
     Dates: end: 20060605
  3. DIGOXIN [Suspect]
     Indication: ATRIAL FIBRILLATION
     Dates: end: 20060605
  4. ENALAPRIL MALEATE [Suspect]
     Indication: CARDIAC FAILURE
     Dates: end: 20060605
  5. ENALAPRIL MALEATE [Suspect]
     Indication: OEDEMA DUE TO CARDIAC DISEASE
     Dates: end: 20060605
  6. FUROSEMIDE COYFARM [Concomitant]
     Route: 048
  7. FOLACIN [Concomitant]
     Route: 048
  8. LEVAXIN [Concomitant]
     Route: 048
  9. BEHEPAN [Concomitant]
     Route: 048
  10. DUROFERON [Concomitant]
     Route: 048

REACTIONS (4)
  - BLOOD CREATININE INCREASED [None]
  - BRADYCARDIA [None]
  - DRUG THERAPEUTIC INCOMPATIBILITY [None]
  - HYPERKALAEMIA [None]
